FAERS Safety Report 26184903 (Version 1)
Quarter: 2025Q4

REPORT INFORMATION
  Report Type: Spontaneous
  Country: IN (occurrence: IN)
  Receive Date: 20251222
  Receipt Date: 20251222
  Transmission Date: 20260118
  Serious: Yes (Hospitalization, Other)
  Sender: STRIDES
  Company Number: IN-STRIDES ARCOLAB LIMITED-2025SP015811

PATIENT

DRUGS (1)
  1. METHOTREXATE [Suspect]
     Active Substance: METHOTREXATE
     Indication: Product used for unknown indication
     Dosage: UNK TABLET
     Route: 065

REACTIONS (5)
  - Pain in extremity [Unknown]
  - Ulcer [Unknown]
  - Dyspnoea [Unknown]
  - Pyrexia [Unknown]
  - Myelosuppression [Unknown]
